FAERS Safety Report 5909120-3 (Version None)
Quarter: 2008Q4

REPORT INFORMATION
  Report Type: 
  Country: None (occurrence: None)
  Receive Date: 20081006
  Receipt Date: 20081003
  Transmission Date: 20090506
  Serious: Yes (Other)
  Sender: FDA-Public Use
  Company Number: A0750375A

PATIENT
  Age: 24 Year
  Sex: Female

DRUGS (2)
  1. ALLI [Suspect]
     Dates: start: 20080928
  2. NO CONCURRENT MEDICATION [Concomitant]

REACTIONS (21)
  - BACK PAIN [None]
  - COGNITIVE DISORDER [None]
  - CRYING [None]
  - DIARRHOEA [None]
  - DISCOMFORT [None]
  - DISORIENTATION [None]
  - DIZZINESS [None]
  - GAIT DISTURBANCE [None]
  - HYPERHIDROSIS [None]
  - IMMOBILE [None]
  - LACERATION [None]
  - LOSS OF CONSCIOUSNESS [None]
  - MALAISE [None]
  - MOVEMENT DISORDER [None]
  - NAUSEA [None]
  - PAIN [None]
  - SKIN LACERATION [None]
  - SPEECH DISORDER [None]
  - URINARY INCONTINENCE [None]
  - VISUAL ACUITY REDUCED [None]
  - VOMITING [None]
